FAERS Safety Report 13396893 (Version 3)
Quarter: 2018Q1

REPORT INFORMATION
  Report Type: Spontaneous
  Country: IE (occurrence: IE)
  Receive Date: 20170403
  Receipt Date: 20180308
  Transmission Date: 20180508
  Serious: Yes (Life-Threatening, Hospitalization, Other)
  Sender: FDA-Public Use
  Company Number: IE-009507513-1703IRL013051

PATIENT
  Age: 52 Year
  Sex: Female

DRUGS (2)
  1. ROCURONIUM BROMIDE. [Suspect]
     Active Substance: ROCURONIUM BROMIDE
     Indication: HYPOVENTILATION
     Dosage: UNK
  2. ROCURONIUM BROMIDE. [Suspect]
     Active Substance: ROCURONIUM BROMIDE
     Indication: OPEN REDUCTION OF FRACTURE

REACTIONS (8)
  - Peripheral circulatory failure [Recovered/Resolved]
  - Oxygen saturation decreased [Recovered/Resolved]
  - Condition aggravated [Recovered/Resolved]
  - Bradycardia [Recovered/Resolved]
  - Anaphylactic reaction [Recovering/Resolving]
  - Hypotension [Recovered/Resolved]
  - Drug ineffective [Recovered/Resolved]
  - Respiratory arrest [Recovering/Resolving]
